FAERS Safety Report 11251908 (Version 1)
Quarter: 2015Q3

REPORT INFORMATION
  Report Type: Spontaneous
  Country: US (occurrence: US)
  Receive Date: 20150708
  Receipt Date: 20150708
  Transmission Date: 20151125
  Serious: Yes (Death)
  Sender: FDA-Public Use
  Company Number: US-ELI_LILLY_AND_COMPANY-US201209003944

PATIENT
  Age: 93 Year
  Sex: Female
  Weight: 61.22 kg

DRUGS (2)
  1. CARBOPLATIN. [Concomitant]
     Active Substance: CARBOPLATIN
     Indication: PLASMA CELL MYELOMA
     Dosage: 450 MG, UNK
     Route: 042
     Dates: start: 20120530, end: 20120626
  2. GEMZAR [Suspect]
     Active Substance: GEMCITABINE HYDROCHLORIDE
     Indication: PLASMA CELL MYELOMA
     Dosage: 1640 MG, UNK
     Route: 042
     Dates: start: 20120616, end: 20120702

REACTIONS (1)
  - Neoplasm progression [Fatal]

NARRATIVE: CASE EVENT DATE: 20120819
